FAERS Safety Report 9700747 (Version 1)
Quarter: 2013Q4

REPORT INFORMATION
  Report Type: Spontaneous
  Country: US (occurrence: None)
  Receive Date: 20131119
  Receipt Date: 20131119
  Transmission Date: 20140711
  Serious: Yes (Other)
  Sender: FDA-Public Use
  Company Number: AUR-APL-2013-09509

PATIENT
  Age: 36 Year
  Sex: Male

DRUGS (7)
  1. QUETIAPINE [Suspect]
     Indication: DEPRESSION
  2. QUETIAPINE [Suspect]
     Indication: PSYCHOTIC DISORDER
  3. QUETIAPINE [Suspect]
     Indication: SUICIDAL BEHAVIOUR
  4. VENLAFAZINE(VENLAFAXINE) [Concomitant]
  5. PROMETHAZINE(PROMETHAZINE) [Concomitant]
  6. LORAZEPAM(LORAZEPAM) [Concomitant]
  7. TEMAZEPAM(TEMAZEPAM) [Concomitant]

REACTIONS (10)
  - Fatigue [None]
  - Asthenia [None]
  - Feeling cold [None]
  - Weight increased [None]
  - Blood pressure increased [None]
  - Blood thyroid stimulating hormone decreased [None]
  - Secondary hypothyroidism [None]
  - Blood cortisol decreased [None]
  - Thyroxine free decreased [None]
  - Stress [None]
